FAERS Safety Report 26022843 (Version 2)
Quarter: 2025Q4

REPORT INFORMATION
  Report Type: Report from Study
  Country: US (occurrence: US)
  Receive Date: 20251110
  Receipt Date: 20251113
  Transmission Date: 20260118
  Serious: Yes (Hospitalization)
  Sender: BAUSCH AND LOMB
  Company Number: US-BAUSCH-BH-2025-019964

PATIENT
  Age: 48 Year
  Sex: Female

DRUGS (3)
  1. WELLBUTRIN XL [Suspect]
     Active Substance: BUPROPION HYDROCHLORIDE
     Indication: Depression
     Route: 065
  2. WELLBUTRIN XL [Suspect]
     Active Substance: BUPROPION HYDROCHLORIDE
     Indication: Panic reaction
  3. WELLBUTRIN XL [Suspect]
     Active Substance: BUPROPION HYDROCHLORIDE
     Indication: Anxiety

REACTIONS (7)
  - Hospitalisation [Unknown]
  - Emotional distress [Unknown]
  - Panic attack [Not Recovered/Not Resolved]
  - Anxiety [Unknown]
  - Dizziness [Unknown]
  - Therapy interrupted [Unknown]
  - Insurance issue [Unknown]
